FAERS Safety Report 8925256 (Version 2)
Quarter: 2012Q4

REPORT INFORMATION
  Report Type: 
  Country: IT (occurrence: IT)
  Receive Date: 20121126
  Receipt Date: 20121214
  Transmission Date: 20130627
  Serious: Yes (Hospitalization)
  Sender: FDA-Public Use
  Company Number: IT-NOVOPROD-364362

PATIENT
  Age: 75 Year
  Sex: Male

DRUGS (12)
  1. LEVEMIR FLEXPEN [Suspect]
     Indication: DIABETES MELLITUS
     Dosage: 16 U, qd
     Route: 058
     Dates: start: 20120301
  2. NOVORAPID FLEXPEN [Suspect]
     Indication: DIABETES MELLITUS
     Dosage: 25 U, qd
     Route: 065
     Dates: start: 20120301
  3. ENALAPRIL [Concomitant]
  4. TICLOPIDINA [Concomitant]
  5. MAALOX                             /00082501/ [Concomitant]
  6. CRESTOR [Concomitant]
  7. COSOPT [Concomitant]
  8. IOPIZE [Concomitant]
  9. PRISMA                             /00390602/ [Concomitant]
  10. DILATREND [Concomitant]
  11. DERMATRANS                         /00003201/ [Concomitant]
  12. LASIX                              /00032601/ [Concomitant]

REACTIONS (4)
  - Malaise [Recovered/Resolved]
  - Asthenia [Recovered/Resolved]
  - Confusional state [Recovered/Resolved]
  - Hyperhidrosis [Recovered/Resolved]
